FAERS Safety Report 9116840 (Version 2)
Quarter: 2013Q1

REPORT INFORMATION
  Report Type: Spontaneous
  Country: US (occurrence: US)
  Receive Date: 20130225
  Receipt Date: 20130314
  Transmission Date: 20140127
  Serious: Yes (Death, Hospitalization, Other)
  Sender: FDA-Public Use
  Company Number: US-009507513-1302USA006220

PATIENT
  Sex: Female
  Weight: 58.96 kg

DRUGS (9)
  1. FOSAMAX [Suspect]
     Indication: OSTEOPOROSIS
     Dosage: UNK, QW FOR YEARS
  2. HUMIRA [Suspect]
     Indication: RHEUMATOID ARTHRITIS
     Dosage: 40 MG/ 0.8ML, 1IN2 WEEK
     Route: 058
     Dates: start: 20120110, end: 20120402
  3. HUMIRA [Suspect]
     Dosage: UNK
     Dates: start: 2011
  4. LEVOTHYROXINE SODIUM [Suspect]
     Indication: HYPOTHYROIDISM
     Dosage: DAILY FOR YEARS
  5. METHOTREXATE [Suspect]
     Indication: RHEUMATOID ARTHRITIS
     Dosage: 7.5 MG, QW
     Route: 048
     Dates: end: 20120403
  6. RITUXIMAB [Suspect]
     Indication: RHEUMATOID ARTHRITIS
     Dosage: 1000MG
     Route: 042
  7. ENBREL [Suspect]
     Indication: RHEUMATOID ARTHRITIS
     Dosage: 9YEARS
     Dates: start: 2002, end: 2011
  8. ADVIL [Suspect]
     Indication: RHEUMATOID ARTHRITIS
     Dosage: 200 MG, PRN,DAILY FOR YEARS
  9. FOLIC ACID [Suspect]
     Indication: RHEUMATOID ARTHRITIS

REACTIONS (3)
  - Hepatic failure [Fatal]
  - Acute hepatitis B [Fatal]
  - Influenza like illness [Unknown]
